FAERS Safety Report 9590272 (Version 2)
Quarter: 2016Q3

REPORT INFORMATION
  Report Type: Spontaneous
  Country: US (occurrence: US)
  Receive Date: 20131003
  Receipt Date: 20160711
  Transmission Date: 20161109
  Serious: Yes (Life-Threatening, Hospitalization, Other)
  Sender: FDA-Public Use
  Company Number: US-MYLANLABS-2013S1021166

PATIENT

DRUGS (3)
  1. CITALOPRAM [Suspect]
     Active Substance: CITALOPRAM HYDROBROMIDE
     Indication: OVERDOSE
     Dosage: UNK
     Route: 048
  2. OLANZAPINE. [Suspect]
     Active Substance: OLANZAPINE
     Indication: OVERDOSE
  3. CLONAZEPAM. [Suspect]
     Active Substance: CLONAZEPAM
     Indication: OVERDOSE
     Route: 048

REACTIONS (7)
  - Overdose [Recovering/Resolving]
  - Bradycardia [Recovering/Resolving]
  - Pneumonia aspiration [Unknown]
  - Cardiotoxicity [Not Recovered/Not Resolved]
  - Seizure [Recovering/Resolving]
  - Unresponsive to stimuli [Recovered/Resolved]
  - Hypotension [Recovering/Resolving]
